FAERS Safety Report 9455631 (Version 2)
Quarter: 2013Q3

REPORT INFORMATION
  Report Type: Spontaneous
  Country: DE (occurrence: None)
  Receive Date: 20130808
  Receipt Date: 20130826
  Transmission Date: 20140515
  Serious: Yes (Death)
  Sender: FDA-Public Use
  Company Number: TPG2013A00829

PATIENT
  Age: 55 Year
  Sex: Male

DRUGS (2)
  1. AZILSARTAN MEDOXOMIL [Suspect]
     Indication: ESSENTIAL HYPERTENSION
     Route: 048
     Dates: start: 20120216, end: 20120420
  2. AZILSARTAN MEDOXOMIL [Suspect]
     Indication: HYPERTENSION
     Route: 048
     Dates: start: 20120216, end: 20120420

REACTIONS (1)
  - Death [None]
